FAERS Safety Report 4407700-8 (Version None)
Quarter: 2004Q3

REPORT INFORMATION
  Report Type: 
  Country: None (occurrence: None)
  Receive Date: 20040721
  Receipt Date: 20040716
  Transmission Date: 20050211
  Serious: No
  Sender: FDA-Public Use
  Company Number: S04-USA-04186-01

PATIENT
  Age: 20 Year
  Sex: Female

DRUGS (1)
  1. CERVIDIL [Suspect]
     Indication: CERVIX DISORDER
     Dosage: 10 MG ONCE VG
     Route: 067

REACTIONS (1)
  - ANAPHYLACTIC REACTION [None]
